FAERS Safety Report 7672249-6 (Version None)
Quarter: 2011Q3

REPORT INFORMATION
  Report Type: 
  Country: None (occurrence: None)
  Receive Date: 20110809
  Receipt Date: 20110729
  Transmission Date: 20111222
  Serious: No
  Sender: FDA-Public Use
  Company Number: JP-UCBSA-038079

PATIENT
  Age: 12 Year
  Sex: Female

DRUGS (4)
  1. KEPPRA [Suspect]
     Indication: EPILEPSY
     Route: 048
     Dates: start: 20110726, end: 20110729
  2. CARBAMAZEPINE [Concomitant]
     Route: 048
  3. PHENOBARBITAL TAB [Concomitant]
  4. MIDAZOLAM HCL [Concomitant]
     Route: 042
     Dates: end: 20110728

REACTIONS (1)
  - THROMBOCYTOPENIA [None]
